FAERS Safety Report 6845624-7 (Version None)
Quarter: 2010Q3

REPORT INFORMATION
  Report Type: 
  Country: None (occurrence: None)
  Receive Date: 20100715
  Receipt Date: 20070824
  Transmission Date: 20110219
  Serious: No
  Sender: FDA-Public Use
  Company Number: US-PFIZER INC-2007072660

PATIENT
  Sex: Female
  Weight: 56.8 kg

DRUGS (5)
  1. CHANTIX [Suspect]
     Indication: SMOKING CESSATION THERAPY
     Dates: start: 20070823
  2. PLAQUENIL [Concomitant]
  3. PREMPRO [Concomitant]
  4. VICODIN [Concomitant]
  5. AMITRIPTYLINE HYDROCHLORIDE [Concomitant]
     Indication: DEPRESSION

REACTIONS (1)
  - NAUSEA [None]
